FAERS Safety Report 15712863 (Version 1)
Quarter: 2018Q4

REPORT INFORMATION
  Report Type: Spontaneous
  Country: US (occurrence: US)
  Receive Date: 20181212
  Receipt Date: 20181212
  Transmission Date: 20190205
  Serious: Yes (Other)
  Sender: FDA-Public Use
  Company Number: US-TORRENT-00007289

PATIENT
  Age: 16 Year

DRUGS (7)
  1. ASPIRIN. [Concomitant]
     Active Substance: ASPIRIN
     Indication: SUICIDAL IDEATION
     Dosage: INGESTED 70 TABLETS
     Route: 048
  2. ALPRAZOLAM. [Concomitant]
     Active Substance: ALPRAZOLAM
     Indication: SUICIDAL IDEATION
     Dosage: FOUR 2 MG TABLETS
  3. COCAINE [Concomitant]
     Active Substance: COCAINE
     Indication: PRODUCT USED FOR UNKNOWN INDICATION
     Dosage: UNKNOWN
  4. BENZTROPINE. [Concomitant]
     Active Substance: BENZTROPINE
     Indication: PRODUCT USED FOR UNKNOWN INDICATION
     Dosage: BENZTROPINE *1
  5. SERTRALINE [Suspect]
     Active Substance: SERTRALINE HYDROCHLORIDE
     Indication: DEPRESSION
     Dosage: 50 MG DAILY
  6. LITHIUM. [Concomitant]
     Active Substance: LITHIUM
     Indication: PRODUCT USED FOR UNKNOWN INDICATION
     Dosage: 450 MG PO
     Route: 048
  7. ARIPIPRAZOLE. [Suspect]
     Active Substance: ARIPIPRAZOLE
     Indication: DEPRESSION
     Dosage: 5 MG PO QHS (EVERY BEDTIME)
     Route: 048

REACTIONS (8)
  - Extrapyramidal disorder [Recovered/Resolved]
  - Suicidal ideation [Unknown]
  - Hallucination, visual [Unknown]
  - Vision blurred [Unknown]
  - Diplopia [Unknown]
  - Muscle contractions involuntary [Unknown]
  - Intentional self-injury [Not Recovered/Not Resolved]
  - Dissociative identity disorder [Unknown]
